FAERS Safety Report 12237876 (Version 2)
Quarter: 2016Q2

REPORT INFORMATION
  Report Type: Report from Study
  Country: ES (occurrence: ES)
  Receive Date: 20160405
  Receipt Date: 20160415
  Transmission Date: 20160815
  Serious: Yes (Hospitalization)
  Sender: FDA-Public Use
  Company Number: ES-ROCHE-1728370

PATIENT
  Age: 39 Year
  Sex: Female
  Weight: 62.7 kg

DRUGS (5)
  1. FOLINIC ACID [Suspect]
     Active Substance: LEUCOVORIN
     Indication: COLORECTAL CANCER METASTATIC
     Dosage: MOST RECENT DOSE PRIOR TO EVENT ONSET: 24/FEB/2016
     Route: 042
     Dates: start: 20151216, end: 20160314
  2. FLUOROURACIL. [Suspect]
     Active Substance: FLUOROURACIL
     Dosage: MOST RECENT DOSE ADMINISTERED ON 24/FEB/2016, PRIOR TO THE EVENT?STARTING BOLUS ON DAY 1 OF EACH CYC
     Route: 042
     Dates: start: 20151216, end: 20160314
  3. BEVACIZUMAB [Suspect]
     Active Substance: BEVACIZUMAB
     Indication: COLORECTAL CANCER METASTATIC
     Dosage: MOST RECENT DOSE ADMINISTERED ON 24/FEB/2016, PRIOR TO THE EVENT
     Route: 042
     Dates: start: 20151216, end: 20160314
  4. FLUOROURACIL. [Suspect]
     Active Substance: FLUOROURACIL
     Indication: COLORECTAL CANCER METASTATIC
     Dosage: MOST RECENT DOSE ADMINISTERED ON 24/FEB/2016, PRIOR TO THE EVENT?STARTING BOLUS ON DAY 1 OF EACH CYC
     Route: 040
     Dates: start: 20151216, end: 20160314
  5. OXALIPLATIN. [Suspect]
     Active Substance: OXALIPLATIN
     Indication: COLORECTAL CANCER METASTATIC
     Dosage: MOST RECENT DOSE ADMINISTERED ON 24/FEB/2016, PRIOR TO THE EVENT
     Route: 042
     Dates: start: 20151216, end: 20160314

REACTIONS (2)
  - Large intestine perforation [Not Recovered/Not Resolved]
  - Large intestinal obstruction [Recovered/Resolved]

NARRATIVE: CASE EVENT DATE: 20160314
